FAERS Safety Report 4425814-3 (Version None)
Quarter: 2004Q3

REPORT INFORMATION
  Report Type: 
  Country: None (occurrence: None)
  Receive Date: 20040810
  Receipt Date: 20040728
  Transmission Date: 20050211
  Serious: Yes (Death, Other)
  Sender: FDA-Public Use
  Company Number: 2004033685

PATIENT
  Age: 43 Year
  Sex: Female

DRUGS (2)
  1. NEURONTIN [Suspect]
     Indication: ILL-DEFINED DISORDER
     Dosage: ORAL
     Route: 048
  2. BACLOFEN [Suspect]
     Indication: ILL-DEFINED DISORDER

REACTIONS (5)
  - COMPLETED SUICIDE [None]
  - DRUG LEVEL ABOVE THERAPEUTIC [None]
  - INTENTIONAL OVERDOSE [None]
  - MUSCLE RELAXANT DRUG LEVEL ABOVE THERAPEUTIC [None]
  - VICTIM OF HOMICIDE [None]
